FAERS Safety Report 19560618 (Version 4)
Quarter: 2021Q3

REPORT INFORMATION
  Report Type: Spontaneous
  Country: US (occurrence: US)
  Receive Date: 20210715
  Receipt Date: 20210908
  Transmission Date: 20211014
  Serious: Yes (Hospitalization, Other)
  Sender: FDA-Public Use
  Company Number: US-SA-2021SA231800

PATIENT
  Age: 47 Year
  Sex: Female

DRUGS (2)
  1. LEMTRADA [Suspect]
     Active Substance: ALEMTUZUMAB
     Indication: MULTIPLE SCLEROSIS
     Dosage: 12 MG, QD
     Route: 041
     Dates: start: 20161102, end: 20161104
  2. LEMTRADA [Suspect]
     Active Substance: ALEMTUZUMAB
     Dosage: 12 MG, QD
     Route: 041
     Dates: start: 20151102, end: 20151106

REACTIONS (10)
  - Weight decreased [Unknown]
  - Feeling abnormal [Unknown]
  - Fatigue [Unknown]
  - Alopecia [Unknown]
  - Contusion [Unknown]
  - Platelet count decreased [Unknown]
  - Hyperhidrosis [Unknown]
  - Immune thrombocytopenia [Unknown]
  - Dizziness [Unknown]
  - Dysphonia [Unknown]

NARRATIVE: CASE EVENT DATE: 20210708
